FAERS Safety Report 5802350-0 (Version None)
Quarter: 2008Q3

REPORT INFORMATION
  Report Type: 
  Country: None (occurrence: None)
  Receive Date: 20080707
  Receipt Date: 20080616
  Transmission Date: 20090109
  Serious: No
  Sender: FDA-Public Use
  Company Number: US-BOEHRINGER INGELHEIM GMBH, GERMANY-2008-BP-08177BP

PATIENT
  Age: 47 Year
  Sex: Female
  Weight: 47 kg

DRUGS (5)
  1. MIRAPEX [Suspect]
     Indication: RESTLESS LEGS SYNDROME
     Dates: end: 20080327
  2. CLONAZEPAM [Concomitant]
  3. WELLBUTRIN SR [Concomitant]
  4. BENICAR [Concomitant]
  5. NEXIUM [Concomitant]

REACTIONS (1)
  - PATHOLOGICAL GAMBLING [None]
